FAERS Safety Report 7256968-1 (Version None)
Quarter: 2011Q1

REPORT INFORMATION
  Report Type: 
  Country: None (occurrence: None)
  Receive Date: 20110129
  Receipt Date: 20100727
  Transmission Date: 20110831
  Serious: Yes (Other)
  Sender: FDA-Public Use
  Company Number: US-ABBOTT-10P-163-0659724-00

PATIENT
  Age: 8 Year
  Sex: Female
  Weight: 23.018 kg

DRUGS (6)
  1. FOLIC ACID [Concomitant]
     Indication: PRODUCT USED FOR UNKNOWN INDICATION
  2. MELOXICAM [Concomitant]
     Indication: PRODUCT USED FOR UNKNOWN INDICATION
  3. HUMIRA [Suspect]
     Indication: JUVENILE ARTHRITIS
     Route: 058
     Dates: start: 20091015
  4. HUMIRA [Suspect]
     Indication: IRITIS
     Route: 058
  5. METHOTREXATE SODIUM [Suspect]
     Indication: IRITIS
  6. METHOTREXATE SODIUM [Suspect]
     Indication: JUVENILE ARTHRITIS
     Dates: start: 20090801

REACTIONS (2)
  - CELLULITIS [None]
  - HERPES ZOSTER [None]
